FAERS Safety Report 4491054-5 (Version None)
Quarter: 2004Q4

REPORT INFORMATION
  Report Type: 
  Country: None (occurrence: None)
  Receive Date: 20041102
  Receipt Date: 20041022
  Transmission Date: 20050328
  Serious: Yes (Hospitalization, Other)
  Sender: FDA-Public Use
  Company Number: AU-MERCK-0410AUS00243

PATIENT
  Age: 76 Year
  Sex: Male

DRUGS (3)
  1. VIOXX [Suspect]
     Route: 048
     Dates: start: 20020101, end: 20040101
  2. [THERAPY UNSPECIFIED] [Concomitant]
     Indication: BLOOD PRESSURE ABNORMAL
     Route: 065
  3. [THERAPY UNSPECIFIED] [Concomitant]
     Indication: BLOOD CHOLESTEROL ABNORMAL
     Route: 065

REACTIONS (3)
  - CEREBROVASCULAR ACCIDENT [None]
  - LYMPHOMA [None]
  - PEPTIC ULCER HAEMORRHAGE [None]
